FAERS Safety Report 13645291 (Version 1)
Quarter: 2017Q2

REPORT INFORMATION
  Report Type: Spontaneous
  Country: US (occurrence: US)
  Receive Date: 20170612
  Receipt Date: 20170612
  Transmission Date: 20170830
  Serious: No
  Sender: FDA-Public Use
  Company Number: US-ROCHE-1297542

PATIENT
  Sex: Female

DRUGS (4)
  1. XELODA [Suspect]
     Active Substance: CAPECITABINE
     Dosage: IN EVENING, 14 DAYS ON, 7 DAYS OFF
     Route: 048
  2. XELODA [Suspect]
     Active Substance: CAPECITABINE
     Indication: COLON CANCER
     Dosage: 14 DAYS ON THEN 7 DAYS OFF, 3 TABLETS IN THE MORNING AND 2 TABLETS IN THE EVENING
     Route: 048
     Dates: start: 20131030
  3. XELODA [Suspect]
     Active Substance: CAPECITABINE
     Dosage: 3 TABLETS TWICE DAILY (MORNING AND EVENING), 14 DAYS ON 7 DAYS OFF
     Route: 048
     Dates: start: 20130915
  4. XELODA [Suspect]
     Active Substance: CAPECITABINE
     Dosage: IN MORNING, 14 DAYS ON 7 DAYS OFF
     Route: 048
     Dates: start: 20131101

REACTIONS (9)
  - Palmar-plantar erythrodysaesthesia syndrome [Unknown]
  - Dry eye [Unknown]
  - Paraesthesia [Not Recovered/Not Resolved]
  - Dry skin [Not Recovered/Not Resolved]
  - Onychomadesis [Not Recovered/Not Resolved]
  - Hypoaesthesia [Not Recovered/Not Resolved]
  - Fungal infection [Unknown]
  - Nail disorder [Not Recovered/Not Resolved]
  - Amnesia [Unknown]
